FAERS Safety Report 5058444-3 (Version None)
Quarter: 2006Q3

REPORT INFORMATION
  Report Type: 
  Country: None (occurrence: None)
  Receive Date: 20060721
  Receipt Date: 20060626
  Transmission Date: 20061208
  Serious: Yes (Other)
  Sender: FDA-Public Use
  Company Number: FR-NOVOPROD-254519

PATIENT
  Age: 43 Year
  Sex: Male
  Weight: 83 kg

DRUGS (5)
  1. GLUCAGEN [Suspect]
     Indication: GLUCOSE TOLERANCE TEST
     Dosage: 1 MG, SINGLE
     Route: 042
     Dates: start: 20060612, end: 20060612
  2. GLUCAGEN [Suspect]
  3. DIAMICRON [Concomitant]
     Indication: DIABETES MELLITUS NON-INSULIN-DEPENDENT
  4. METFORMIN [Concomitant]
     Indication: DIABETES MELLITUS NON-INSULIN-DEPENDENT
  5. ASPERGIC [Concomitant]
     Dosage: 160 MG, UNK

REACTIONS (4)
  - HEADACHE [None]
  - HYPERHIDROSIS [None]
  - LOSS OF CONSCIOUSNESS [None]
  - PHARMACEUTICAL PRODUCT COMPLAINT [None]
